FAERS Safety Report 25647435 (Version 2)
Quarter: 2025Q3

REPORT INFORMATION
  Report Type: Spontaneous
  Country: US (occurrence: US)
  Receive Date: 20250806
  Receipt Date: 20250826
  Transmission Date: 20251021
  Serious: No
  Sender: SANOFI AVENTIS
  Company Number: US-SA-2025SA228101

PATIENT
  Age: 86 Year
  Sex: Male
  Weight: 78.02 kg

DRUGS (22)
  1. DUPIXENT [Suspect]
     Active Substance: DUPILUMAB
     Indication: Dermatitis atopic
     Route: 058
     Dates: start: 202507, end: 202507
  2. DUPIXENT [Suspect]
     Active Substance: DUPILUMAB
     Dosage: 300 MG, QOW
     Route: 058
     Dates: start: 202507
  3. CALCIUM [Concomitant]
     Active Substance: CALCIUM
     Route: 048
  4. HYDROCHLOROTHIAZIDE [Concomitant]
     Active Substance: HYDROCHLOROTHIAZIDE
  5. LUPRON [Concomitant]
     Active Substance: LEUPROLIDE ACETATE
     Route: 030
  6. Multi [Concomitant]
  7. ZYTIGA [Concomitant]
     Active Substance: ABIRATERONE ACETATE
     Route: 048
  8. AMLODIPINE [Concomitant]
     Active Substance: AMLODIPINE BESYLATE
     Route: 048
  9. ATENOLOL [Concomitant]
     Active Substance: ATENOLOL
  10. FINASTERIDE [Concomitant]
     Active Substance: FINASTERIDE
  11. HYDROXOCOBALAMIN HYDROCHLORIDE [Concomitant]
     Active Substance: HYDROXOCOBALAMIN HYDROCHLORIDE
  12. LOSARTAN POTASSIUM [Concomitant]
     Active Substance: LOSARTAN POTASSIUM
     Route: 048
  13. TAMSULOSIN [Concomitant]
     Active Substance: TAMSULOSIN
  14. CARVEDILOL [Concomitant]
     Active Substance: CARVEDILOL
     Route: 048
  15. OMEPRAZOLE [Concomitant]
     Active Substance: OMEPRAZOLE
     Route: 048
  16. PREDNISONE [Concomitant]
     Active Substance: PREDNISONE
     Route: 048
  17. MINERALS\VITAMINS [Concomitant]
     Active Substance: MINERALS\VITAMINS
     Route: 048
  18. OXYBUTYNIN CHLORIDE [Concomitant]
     Active Substance: OXYBUTYNIN CHLORIDE
  19. CLOBETASOL [Concomitant]
     Active Substance: CLOBETASOL
     Indication: Pruritus
     Dosage: UNK UNK, BID; MONDAY-FRIDAY. TAKE A BREAK IN THE WEEKENDS? TO BE MENTIONED,
     Route: 061
  20. TACROLIMUS [Concomitant]
     Active Substance: TACROLIMUS
     Indication: Pruritus
     Dosage: UNK, BID ON WEEKENDS
     Route: 061
  21. FLUOCINONIDE [Concomitant]
     Active Substance: FLUOCINONIDE
  22. CALCIUM\VITAMIN D [Concomitant]
     Active Substance: CALCIUM\VITAMIN D
     Route: 048

REACTIONS (2)
  - Eyelid margin crusting [Recovered/Resolved]
  - Blood uric acid increased [Unknown]

NARRATIVE: CASE EVENT DATE: 20250101
